FAERS Safety Report 6282554-6 (Version None)
Quarter: 2009Q3

REPORT INFORMATION
  Report Type: 
  Country: None (occurrence: None)
  Receive Date: 20090724
  Receipt Date: 20090715
  Transmission Date: 20100115
  Serious: Yes (Hospitalization, Other)
  Sender: FDA-Public Use
  Company Number: DE-JNJFOC-20090703550

PATIENT
  Age: 60 Year
  Sex: Female

DRUGS (3)
  1. INVEGA [Suspect]
     Indication: DRUG USE FOR UNKNOWN INDICATION
     Route: 048
  2. TRUXAL [Concomitant]
     Indication: MANIA
     Route: 048
  3. CIATYL [Concomitant]
     Indication: MANIA
     Route: 048

REACTIONS (3)
  - CARDIOVASCULAR DISORDER [None]
  - MANIA [None]
  - PANIC REACTION [None]
